FAERS Safety Report 9209742 (Version 1)
Quarter: 2013Q1

REPORT INFORMATION
  Report Type: Spontaneous
  Country: US (occurrence: None)
  Receive Date: 20120820
  Receipt Date: 20120820
  Transmission Date: 20140127
  Serious: No
  Sender: FDA-Public Use
  Company Number: 1000030092

PATIENT
  Age: 62 Year
  Sex: Female

DRUGS (6)
  1. VIIBRYD (VILAZODONE) (10 MILLIGRAM, TABLETS) [Suspect]
     Indication: DEPRESSION
     Route: 048
     Dates: start: 20120207, end: 20120213
  2. VIIBRYD (VILAZODONE) (TABLETS) [Suspect]
     Indication: DEPRESSION
     Route: 048
     Dates: start: 20120214, end: 20120224
  3. LITHIUM (LITHIUM) (LITHIUM) [Concomitant]
  4. LORAZEPAM (LORAZEPAM) (LORAZEPAM) [Concomitant]
  5. LEVOTHYROXINE (LEVOTHROXINE SODIUM) (LEVOTHYROXINE SODIUM) [Concomitant]
  6. BOTOX (BOTULINUM TOXIN TYPE A) (BOTULINUM TOXIN TYPE A) [Concomitant]

REACTIONS (6)
  - Musculoskeletal stiffness [None]
  - Paraesthesia [None]
  - Sensory disturbance [None]
  - Feeling hot [None]
  - Pain in extremity [None]
  - Arthralgia [None]
